FAERS Safety Report 18393631 (Version 1)
Quarter: 2020Q4

REPORT INFORMATION
  Report Type: Spontaneous
  Country: US (occurrence: US)
  Receive Date: 20201016
  Receipt Date: 20201016
  Transmission Date: 20210114
  Serious: No
  Sender: FDA-Public Use
  Company Number: US-JACOBUS PHARMACEUTICAL COMPANY, INC.-2092868

PATIENT
  Age: 68 Year
  Sex: Female

DRUGS (17)
  1. CYANOCOBALAMIN. [Concomitant]
     Active Substance: CYANOCOBALAMIN
  2. JARDIANCE [Concomitant]
     Active Substance: EMPAGLIFLOZIN
  3. VITAMIN C [Concomitant]
     Active Substance: ASCORBIC ACID
  4. PREDNISONE. [Concomitant]
     Active Substance: PREDNISONE
  5. MECLIZINE [Concomitant]
     Active Substance: MECLIZINE HYDROCHLORIDE
  6. MAGNESIUM [Concomitant]
     Active Substance: MAGNESIUM
  7. TRAMADOL. [Concomitant]
     Active Substance: TRAMADOL
  8. POTASSIUM [Concomitant]
     Active Substance: POTASSIUM
  9. TYLENOL EXTRA STRENGTH [Concomitant]
     Active Substance: ACETAMINOPHEN
  10. RUZURGI [Suspect]
     Active Substance: AMIFAMPRIDINE
     Indication: MYASTHENIC SYNDROME
     Route: 048
     Dates: start: 20200610
  11. VENLAFAXINE [Concomitant]
     Active Substance: VENLAFAXINE HYDROCHLORIDE
  12. IRON [Concomitant]
     Active Substance: IRON
  13. INTRAVENOUS IMMUNOGLOBULIN [Concomitant]
     Active Substance: HUMAN IMMUNOGLOBULIN G
  14. NPLATE [Concomitant]
     Active Substance: ROMIPLOSTIM
  15. MIDODRINE HYDROCHLORIDE. [Concomitant]
     Active Substance: MIDODRINE HYDROCHLORIDE
  16. MESTINON [Concomitant]
     Active Substance: PYRIDOSTIGMINE BROMIDE
  17. PANTOPRAZOLE SODIUM. [Concomitant]
     Active Substance: PANTOPRAZOLE SODIUM

REACTIONS (1)
  - Paraesthesia [Unknown]

NARRATIVE: CASE EVENT DATE: 20200728
